FAERS Safety Report 14257793 (Version 1)
Quarter: 2017Q4

REPORT INFORMATION
  Report Type: Spontaneous
  Country: CH (occurrence: CH)
  Receive Date: 20171207
  Receipt Date: 20171207
  Transmission Date: 20180321
  Serious: Yes (Death, Hospitalization, Other)
  Sender: FDA-Public Use
  Company Number: CH-ROCHE-2032062

PATIENT
  Age: 8 Year
  Sex: Male

DRUGS (2)
  1. ACTEMRA [Suspect]
     Active Substance: TOCILIZUMAB
     Indication: CYTOKINE RELEASE SYNDROME
     Route: 065
     Dates: start: 20140519
  2. TISAGENLECLEUCEL. [Suspect]
     Active Substance: TISAGENLECLEUCEL
     Indication: ACUTE LYMPHOCYTIC LEUKAEMIA
     Dosage: UNCERTAINTY
     Route: 065

REACTIONS (9)
  - Neutrophil count decreased [Recovered/Resolved]
  - Thermal burn [Unknown]
  - Febrile neutropenia [Recovered/Resolved]
  - Pain [Unknown]
  - Encephalopathy [Recovered/Resolved]
  - Lymphocyte count decreased [Recovered/Resolved]
  - Disease progression [Fatal]
  - White blood cell count decreased [Recovered/Resolved]
  - Platelet count decreased [Not Recovered/Not Resolved]

NARRATIVE: CASE EVENT DATE: 20140527
